FAERS Safety Report 10187957 (Version 1)
Quarter: 2014Q2

REPORT INFORMATION
  Report Type: Spontaneous
  Country: US (occurrence: US)
  Receive Date: 20140522
  Receipt Date: 20140522
  Transmission Date: 20141212
  Serious: No
  Sender: FDA-Public Use
  Company Number: US-SA-2013SA105173

PATIENT
  Age: 60 Year
  Sex: Female

DRUGS (3)
  1. SOLOSTAR [Suspect]
     Indication: TYPE 2 DIABETES MELLITUS
     Dosage: 1 YEARS
  2. LANTUS SOLOSTAR [Suspect]
     Indication: TYPE 2 DIABETES MELLITUS
     Dosage: 1 YEARS DOSE:45 UNIT(S)
     Route: 051
  3. HUMALOG [Concomitant]

REACTIONS (5)
  - Gilbert^s syndrome [Unknown]
  - Haemorrhage [Unknown]
  - Pruritus [Unknown]
  - Tremor [Unknown]
  - Blood glucose increased [Unknown]
